FAERS Safety Report 25065220 (Version 1)
Quarter: 2025Q1

REPORT INFORMATION
  Report Type: Spontaneous
  Country: US (occurrence: US)
  Receive Date: 20250311
  Receipt Date: 20250311
  Transmission Date: 20250408
  Serious: No
  Sender: LEXICON PHARMACEUTICALS
  Company Number: US-LEX-000668

PATIENT
  Age: 74 Year
  Sex: Female

DRUGS (2)
  1. INPEFA [Suspect]
     Active Substance: SOTAGLIFLOZIN
     Indication: Arteriosclerosis
     Route: 048
     Dates: start: 20250207, end: 20250210
  2. FARXIGA [Concomitant]
     Active Substance: DAPAGLIFLOZIN PROPANEDIOL

REACTIONS (5)
  - Bradyphrenia [Unknown]
  - Fatigue [Unknown]
  - Urinary tract infection [Unknown]
  - Dizziness [Unknown]
  - Off label use [Unknown]

NARRATIVE: CASE EVENT DATE: 20250207
